FAERS Safety Report 20889169 (Version 1)
Quarter: 2022Q2

REPORT INFORMATION
  Report Type: Spontaneous
  Country: US (occurrence: US)
  Receive Date: 20220530
  Receipt Date: 20220530
  Transmission Date: 20220721
  Serious: No
  Sender: FDA-Public Use
  Company Number: US-drreddys-SPO/USA/22/0150125

PATIENT
  Age: 19 Year
  Sex: Female

DRUGS (2)
  1. ZENATANE [Suspect]
     Active Substance: ISOTRETINOIN
     Indication: Product used for unknown indication
     Dosage: RMA ISSUE DATE: 02 NOVEMBER 2021 04:32:16 PM, 03 DECEMBER 2021 09:36:43 AM, 11 JANUARY 2022 07:37:32
  2. ZENATANE [Suspect]
     Active Substance: ISOTRETINOIN
     Dosage: RMA ISSUE DATE: 23 SEPTEMBER 2021 10:49:33 AM

REACTIONS (1)
  - Dry skin [Unknown]
